FAERS Safety Report 5463841-8 (Version None)
Quarter: 2007Q3

REPORT INFORMATION
  Report Type: 
  Country: None (occurrence: None)
  Receive Date: 20070919
  Receipt Date: 20070913
  Transmission Date: 20080115
  Serious: Yes (Hospitalization, Other)
  Sender: FDA-Public Use
  Company Number: 40793

PATIENT
  Age: 55 Year
  Sex: Female

DRUGS (1)
  1. LEUCOVORIN CALCIUM [Suspect]
     Indication: COLON CANCER
     Dosage: 744MG/M2/IV
     Route: 042
     Dates: start: 20070808

REACTIONS (12)
  - BLOOD CULTURE POSITIVE [None]
  - DRUG TOXICITY [None]
  - ESCHERICHIA INFECTION [None]
  - HYDRONEPHROSIS [None]
  - INFECTION [None]
  - NAUSEA [None]
  - NEPHROLITHIASIS [None]
  - NEUTROPHIL COUNT DECREASED [None]
  - PERINEPHRIC COLLECTION [None]
  - URETERIC OBSTRUCTION [None]
  - URETERITIS [None]
  - WHITE BLOOD CELL COUNT DECREASED [None]
